FAERS Safety Report 15801975 (Version 1)
Quarter: 2019Q1

REPORT INFORMATION
  Report Type: Report from Study
  Country: IT (occurrence: IT)
  Receive Date: 20190109
  Receipt Date: 20190109
  Transmission Date: 20190417
  Serious: Yes (Other)
  Sender: FDA-Public Use
  Company Number: IT-BAYER-2019-005179

PATIENT
  Sex: Female

DRUGS (2)
  1. CLOPIDOGREL [Suspect]
     Active Substance: CLOPIDOGREL BISULFATE
  2. ASPIRIN. [Suspect]
     Active Substance: ASPIRIN
     Indication: RENAL DISORDER PROPHYLAXIS
     Dosage: UNK

REACTIONS (6)
  - Retroperitoneal haematoma [None]
  - Labelled drug-drug interaction medication error [None]
  - Shock haemorrhagic [None]
  - Iliac artery rupture [None]
  - Off label use [None]
  - Acute kidney injury [Recovered/Resolved]
